FAERS Safety Report 12417320 (Version 1)
Quarter: 2016Q2

REPORT INFORMATION
  Report Type: Spontaneous
  Country: GB (occurrence: GB)
  Receive Date: 20160530
  Receipt Date: 20160530
  Transmission Date: 20160815
  Serious: Yes (Other)
  Sender: FDA-Public Use
  Company Number: GB-JNJFOC-20150612833

PATIENT
  Sex: Female

DRUGS (2)
  1. AMOXICILLIN. [Concomitant]
     Active Substance: AMOXICILLIN
  2. SIMPONI [Suspect]
     Active Substance: GOLIMUMAB
     Indication: RHEUMATOID ARTHRITIS
     Dosage: STRENGTH: 50 MG
     Route: 058

REACTIONS (2)
  - Lower respiratory tract infection [Unknown]
  - Pharyngitis [Unknown]
